FAERS Safety Report 6966466-8 (Version None)
Quarter: 2010Q3

REPORT INFORMATION
  Report Type: 
  Country: None (occurrence: None)
  Receive Date: 20100906
  Receipt Date: 20100830
  Transmission Date: 20110219
  Serious: Yes (Other)
  Sender: FDA-Public Use
  Company Number: US-BIOGENIDEC-2010BI026601

PATIENT
  Age: 39 Year
  Sex: Female

DRUGS (8)
  1. TYSABRI [Suspect]
     Indication: MULTIPLE SCLEROSIS
     Route: 042
     Dates: start: 20080723
  2. AVONEX [Concomitant]
     Indication: MULTIPLE SCLEROSIS
     Dates: start: 20070202
  3. NEURONTIN [Concomitant]
     Indication: NEURALGIA
  4. BACLOFEN [Concomitant]
     Indication: MUSCLE SPASTICITY
  5. FLONASE [Concomitant]
     Indication: MULTIPLE ALLERGIES
  6. ALLEGRA [Concomitant]
     Indication: MULTIPLE ALLERGIES
  7. LISINOPRIL [Concomitant]
     Indication: HYPERTENSION
  8. ZOLOFT [Concomitant]
     Indication: DEPRESSION

REACTIONS (1)
  - THROMBOPHLEBITIS SUPERFICIAL [None]
